FAERS Safety Report 24053416 (Version 1)
Quarter: 2024Q3

REPORT INFORMATION
  Report Type: Spontaneous
  Country: FR (occurrence: FR)
  Receive Date: 20240705
  Receipt Date: 20240705
  Transmission Date: 20241017
  Serious: Yes (Other)
  Sender: ABBVIE
  Company Number: None

PATIENT
  Age: 32 Year
  Sex: Female
  Weight: 90 kg

DRUGS (1)
  1. HUMIRA [Suspect]
     Active Substance: ADALIMUMAB
     Indication: Hidradenitis
     Dosage: 160MG D1 THEN 80MG/2 WEEKS
     Route: 058
     Dates: start: 202401, end: 20240413

REACTIONS (1)
  - Paradoxical psoriasis [Unknown]

NARRATIVE: CASE EVENT DATE: 20240401
